FAERS Safety Report 8886030 (Version 3)
Quarter: 2013Q1

REPORT INFORMATION
  Report Type: Report from Study
  Country: CA (occurrence: CA)
  Receive Date: 20121105
  Receipt Date: 20130201
  Transmission Date: 20140127
  Serious: Yes (Other)
  Sender: FDA-Public Use
  Company Number: CA-ROCHE-1151657

PATIENT
  Sex: Male

DRUGS (4)
  1. ZELBORAF [Suspect]
     Indication: METASTATIC MALIGNANT MELANOMA
     Route: 048
  2. VENTOLIN [Concomitant]
  3. CIPRALEX [Concomitant]
     Route: 065
  4. IMOVANE [Concomitant]

REACTIONS (1)
  - Brain neoplasm [Not Recovered/Not Resolved]
